FAERS Safety Report 16798263 (Version 2)
Quarter: 2025Q2

REPORT INFORMATION
  Report Type: Spontaneous
  Country: NL (occurrence: NL)
  Receive Date: 20190912
  Receipt Date: 20250623
  Transmission Date: 20250716
  Serious: Yes (Life-Threatening, Hospitalization, Other)
  Sender: AUROBINDO
  Company Number: NL-AUROBINDO-AUR-APL-2019-060087

PATIENT
  Age: 13 Month
  Sex: Male
  Weight: 10 kg

DRUGS (9)
  1. PHENYTOIN [Suspect]
     Active Substance: PHENYTOIN
     Indication: Seizure
     Route: 042
  2. MIDAZOLAM [Suspect]
     Active Substance: MIDAZOLAM
     Indication: Seizure
     Route: 041
  3. MIDAZOLAM [Suspect]
     Active Substance: MIDAZOLAM
     Route: 041
  4. MIDAZOLAM [Suspect]
     Active Substance: MIDAZOLAM
     Route: 045
  5. MIDAZOLAM [Suspect]
     Active Substance: MIDAZOLAM
     Route: 042
  6. LEVETIRACETAM [Suspect]
     Active Substance: LEVETIRACETAM
     Indication: Seizure
     Route: 042
  7. ACYCLOVIR [Concomitant]
     Active Substance: ACYCLOVIR
     Indication: Prophylaxis
     Route: 065
  8. CEFTRIAXONE [Concomitant]
     Active Substance: CEFTRIAXONE
     Indication: Prophylaxis
     Route: 065
  9. DEXMEDETOMIDINE [Concomitant]
     Active Substance: DEXMEDETOMIDINE
     Indication: Product used for unknown indication
     Route: 042

REACTIONS (2)
  - Respiratory failure [Recovered/Resolved]
  - Drug ineffective [Unknown]
